FAERS Safety Report 19153320 (Version 2)
Quarter: 2021Q3

REPORT INFORMATION
  Report Type: Spontaneous
  Country: JP (occurrence: JP)
  Receive Date: 20210419
  Receipt Date: 20210714
  Transmission Date: 20211014
  Serious: Yes (Other)
  Sender: FDA-Public Use
  Company Number: JP-BAUSCH-BL-2021-013859

PATIENT
  Age: 7 Decade
  Sex: Male

DRUGS (1)
  1. LUMICEF [Suspect]
     Active Substance: BRODALUMAB
     Indication: PSORIASIS
     Route: 058

REACTIONS (1)
  - Polycythaemia vera [Unknown]
